FAERS Safety Report 6668839-X (Version None)
Quarter: 2010Q2

REPORT INFORMATION
  Report Type: 
  Country: None (occurrence: None)
  Receive Date: 20100406
  Receipt Date: 20100330
  Transmission Date: 20101027
  Serious: Yes (Other)
  Sender: FDA-Public Use
  Company Number: US-ROCHE-681908

PATIENT
  Sex: Female
  Weight: 68 kg

DRUGS (1)
  1. BONIVA [Suspect]
     Indication: OSTEOPOROSIS
     Route: 048
     Dates: end: 20100101

REACTIONS (5)
  - BALANCE DISORDER [None]
  - DEMENTIA [None]
  - FALL [None]
  - INCREASED UPPER AIRWAY SECRETION [None]
  - SYNCOPE [None]
